FAERS Safety Report 8200327-1 (Version None)
Quarter: 2012Q1

REPORT INFORMATION
  Report Type: 
  Country: None (occurrence: None)
  Receive Date: 20120312
  Receipt Date: 20120305
  Transmission Date: 20120608
  Serious: Yes (Other)
  Sender: FDA-Public Use
  Company Number: FR-PFIZER INC-2012035077

PATIENT
  Age: 19 Year
  Sex: Male
  Weight: 51 kg

DRUGS (7)
  1. VFEND [Suspect]
     Dosage: 400 MG, 2X/DAY
     Route: 048
  2. VFEND [Suspect]
     Dosage: 200 MG, 2X/DAY
     Route: 048
     Dates: start: 20110920, end: 20111014
  3. VITAMIN K1 [Concomitant]
     Dosage: UNK
     Route: 042
     Dates: start: 20110920
  4. REPAGLINIDE [Concomitant]
     Indication: DIABETES MELLITUS
     Dosage: 1 MG, 3X/DAY
     Route: 048
  5. PREDNISOLONE [Concomitant]
     Indication: ANTIINFLAMMATORY THERAPY
     Dosage: 60 MG, 1X/DAY, THEN REDUCED DOSE
     Route: 048
     Dates: start: 20110920, end: 20111220
  6. PULMOZYME [Concomitant]
     Dosage: 2.5 MG, 1X/DAY
  7. VFEND [Suspect]
     Indication: ASPERGILLOSIS
     Dosage: 200 MG, 2X/DAY
     Route: 048
     Dates: start: 20110823

REACTIONS (2)
  - TOXICITY TO VARIOUS AGENTS [None]
  - HEMIANOPIA [None]
